FAERS Safety Report 20148808 (Version 1)
Quarter: 2021Q4

REPORT INFORMATION
  Report Type: Spontaneous
  Country: CN (occurrence: CN)
  Receive Date: 20211204
  Receipt Date: 20211204
  Transmission Date: 20220303
  Serious: Yes (Other)
  Sender: FDA-Public Use
  Company Number: CN-CHIESI-2021CHF06093

PATIENT

DRUGS (2)
  1. CUROSURF [Suspect]
     Active Substance: PORACTANT ALFA
     Indication: Neonatal respiratory distress syndrome
     Dosage: UNK
     Route: 038
  2. OXYGEN [Concomitant]
     Active Substance: OXYGEN
     Indication: Oxygen therapy
     Dosage: UNK

REACTIONS (1)
  - Pneumonia [Unknown]
